FAERS Safety Report 24246947 (Version 1)
Quarter: 2024Q3

REPORT INFORMATION
  Report Type: Report from Study
  Country: CN (occurrence: CN)
  Receive Date: 20240826
  Receipt Date: 20240826
  Transmission Date: 20241016
  Serious: Yes (Other)
  Sender: AUROBINDO
  Company Number: CN-AUROBINDO-AUR-APL-2024-040717

PATIENT
  Age: 36 Month
  Sex: Female

DRUGS (3)
  1. MELPHALAN [Suspect]
     Active Substance: MELPHALAN
     Indication: Retinoblastoma
     Dosage: UNK UNK, CYCLICAL (3-7.5 MG) (5 CYCLES)
     Route: 065
  2. CARBOPLATIN [Suspect]
     Active Substance: CARBOPLATIN
     Indication: Retinoblastoma
     Dosage: 20 MILLIGRAM, CYCLICAL(5 CYCLES)
     Route: 065
  3. TOPOTECAN [Suspect]
     Active Substance: TOPOTECAN HYDROCHLORIDE
     Indication: Retinoblastoma
     Dosage: 1 MILLIGRAM, CYCLICAL (5 CYCLES)
     Route: 065

REACTIONS (1)
  - Cataract [Unknown]
